FAERS Safety Report 18809964 (Version 1)
Quarter: 2021Q1

REPORT INFORMATION
  Report Type: Spontaneous
  Country: US (occurrence: US)
  Receive Date: 20210129
  Receipt Date: 20210129
  Transmission Date: 20210419
  Serious: No
  Sender: FDA-Public Use
  Company Number: US-ASTRAZENECA-2021A000280

PATIENT
  Sex: Male

DRUGS (2)
  1. BRILINTA [Suspect]
     Active Substance: TICAGRELOR
     Indication: MYOCARDIAL INFARCTION
     Route: 048
     Dates: start: 2017
  2. ASPIRIN. [Concomitant]
     Active Substance: ASPIRIN
     Indication: ADJUVANT THERAPY
     Route: 048
     Dates: start: 2017

REACTIONS (2)
  - Blood blister [Unknown]
  - Intentional product use issue [Unknown]
